FAERS Safety Report 24835853 (Version 4)
Quarter: 2025Q2

REPORT INFORMATION
  Report Type: Report from Study
  Country: JP (occurrence: JP)
  Receive Date: 20250113
  Receipt Date: 20250626
  Transmission Date: 20250716
  Serious: Yes (Hospitalization, Other)
  Sender: UCB
  Company Number: JP-UCBJ-CD202500075UCBPHAPROD

PATIENT
  Age: 29 Year
  Sex: Male

DRUGS (9)
  1. ZILUCOPLAN [Suspect]
     Active Substance: ZILUCOPLAN
     Indication: Myasthenia gravis
     Dosage: 32.4 MILLIGRAM, ONCE DAILY (QD)
     Route: 058
     Dates: start: 20241213, end: 20250125
  2. HUMAN IMMUNOGLOBULIN G [Concomitant]
     Active Substance: HUMAN IMMUNOGLOBULIN G
     Indication: Product used for unknown indication
     Route: 042
  3. EFGARTIGIMOD ALFA(GENETICAL RECOMBINATION) [Concomitant]
     Indication: Myasthenia gravis
     Dosage: 1008 MILLIGRAM, WEEKLY (QW)
     Dates: end: 20241127
  4. PREDONINE [Concomitant]
     Active Substance: PREDNISOLONE
     Indication: Myasthenia gravis
     Dates: end: 20250406
  5. PREDONINE [Concomitant]
     Active Substance: PREDNISOLONE
     Dosage: 25 MILLIGRAM, ONCE DAILY (QD)
     Route: 048
     Dates: start: 20250407, end: 20250511
  6. PREDONINE [Concomitant]
     Active Substance: PREDNISOLONE
     Dosage: 30 MILLIGRAM, ONCE DAILY (QD)
     Route: 048
     Dates: start: 20250512, end: 20250521
  7. PREDONINE [Concomitant]
     Active Substance: PREDNISOLONE
     Dosage: 35 MILLIGRAM, ONCE DAILY (QD)
     Route: 048
     Dates: start: 20250522, end: 20250525
  8. PREDONINE [Concomitant]
     Active Substance: PREDNISOLONE
     Dosage: 40 MILLIGRAM, ONCE DAILY (QD)
     Route: 048
     Dates: start: 20250526
  9. PROGRAF [Concomitant]
     Active Substance: TACROLIMUS
     Indication: Myasthenia gravis
     Route: 048

REACTIONS (2)
  - Myasthenia gravis [Recovering/Resolving]
  - Therapeutic response decreased [Unknown]

NARRATIVE: CASE EVENT DATE: 20250106
